FAERS Safety Report 23499793 (Version 1)
Quarter: 2024Q1

REPORT INFORMATION
  Report Type: Spontaneous
  Country: CN (occurrence: CN)
  Receive Date: 20240208
  Receipt Date: 20240208
  Transmission Date: 20240410
  Serious: Yes (Hospitalization, Other)
  Sender: FDA-Public Use
  Company Number: CN-ABBVIE-5625758

PATIENT
  Age: 49 Year
  Sex: Female

DRUGS (3)
  1. VENETOCLAX [Suspect]
     Active Substance: VENETOCLAX
     Indication: Acute myeloid leukaemia
     Dosage: DAYS 1-14
     Route: 048
  2. CYTARABINE [Suspect]
     Active Substance: CYTARABINE
     Indication: Acute myeloid leukaemia
     Dosage: DAYS 1-7
     Route: 065
  3. IDARUBICIN [Suspect]
     Active Substance: IDARUBICIN
     Indication: Acute myeloid leukaemia
     Dosage: DAYS 1 AND 2
     Route: 065

REACTIONS (6)
  - Myelosuppression [Unknown]
  - Agranulocytosis [Unknown]
  - Sepsis [Recovering/Resolving]
  - Fungal sepsis [Unknown]
  - Drug eruption [Recovering/Resolving]
  - Toxic epidermal necrolysis [Recovering/Resolving]
